FAERS Safety Report 4301347-X (Version None)
Quarter: 2004Q1

REPORT INFORMATION
  Report Type: 
  Country: None (occurrence: None)
  Receive Date: 20040223
  Receipt Date: 20030409
  Transmission Date: 20041129
  Serious: No
  Sender: FDA-Public Use
  Company Number: US-GLAXOSMITHKLINE-A0404310A

PATIENT
  Age: 55 Year
  Sex: Male

DRUGS (3)
  1. NAVELBINE [Suspect]
     Route: 042
     Dates: start: 20030409, end: 20030409
  2. KYTRIL [Concomitant]
  3. BENADRYL [Concomitant]

REACTIONS (1)
  - EXTRAVASATION [None]
